FAERS Safety Report 12511125 (Version 1)
Quarter: 2016Q2

REPORT INFORMATION
  Report Type: Spontaneous
  Country: IL (occurrence: IL)
  Receive Date: 20160629
  Receipt Date: 20160629
  Transmission Date: 20160815
  Serious: Yes (Other)
  Sender: FDA-Public Use
  Company Number: IL-ABBVIE-15P-082-1450683-00

PATIENT
  Age: 65 Year
  Sex: Female

DRUGS (8)
  1. VIEKIRAX [Suspect]
     Active Substance: OMBITASVIR\PARITAPREVIR\RITONAVIR
     Indication: BLOOD BILIRUBIN INCREASED
  2. VIEKIRAX [Suspect]
     Active Substance: OMBITASVIR\PARITAPREVIR\RITONAVIR
     Indication: ASCITES
  3. EXVIERA [Suspect]
     Active Substance: DASABUVIR
     Indication: HEPATIC LESION
  4. VIEKIRAX [Suspect]
     Active Substance: OMBITASVIR\PARITAPREVIR\RITONAVIR
     Indication: HEPATIC LESION
  5. EXVIERA [Suspect]
     Active Substance: DASABUVIR
     Indication: ASCITES
  6. EXVIERA [Suspect]
     Active Substance: DASABUVIR
     Indication: HEPATITIS C
     Route: 048
     Dates: start: 20150803, end: 20150920
  7. EXVIERA [Suspect]
     Active Substance: DASABUVIR
     Indication: BLOOD BILIRUBIN INCREASED
  8. VIEKIRAX [Suspect]
     Active Substance: OMBITASVIR\PARITAPREVIR\RITONAVIR
     Indication: HEPATITIS C
     Route: 048
     Dates: start: 20150803, end: 20150920

REACTIONS (7)
  - Hepatic lesion [Not Recovered/Not Resolved]
  - Asthenia [Unknown]
  - Hepatocellular carcinoma [Not Recovered/Not Resolved]
  - Ascites [Not Recovered/Not Resolved]
  - Blood bilirubin increased [Recovered/Resolved]
  - Oedema [Unknown]
  - Leukopenia [Unknown]

NARRATIVE: CASE EVENT DATE: 201509
